FAERS Safety Report 6093112-0 (Version None)
Quarter: 2009Q1

REPORT INFORMATION
  Report Type: 
  Country: None (occurrence: None)
  Receive Date: 20090223
  Receipt Date: 20090211
  Transmission Date: 20090719
  Serious: No
  Sender: FDA-Public Use
  Company Number: US-GDP-09405370

PATIENT
  Sex: Female

DRUGS (2)
  1. TRI-LUMA [Suspect]
     Indication: DRUG USE FOR UNKNOWN INDICATION
     Dosage: 1 DF, TOPICAL
     Route: 061
     Dates: start: 20090126, end: 20090126
  2. TRAZODONE HCL [Concomitant]

REACTIONS (4)
  - BLOOD PRESSURE INCREASED [None]
  - BODY TEMPERATURE DECREASED [None]
  - TREMOR [None]
  - TYPE I HYPERSENSITIVITY [None]
